FAERS Safety Report 21033736 (Version 2)
Quarter: 2022Q3

REPORT INFORMATION
  Report Type: Spontaneous
  Country: GB (occurrence: GB)
  Receive Date: 20220701
  Receipt Date: 20220816
  Transmission Date: 20221027
  Serious: Yes (Death, Hospitalization, Other)
  Sender: FDA-Public Use
  Company Number: None

PATIENT
  Age: 16 Year
  Sex: Female

DRUGS (1)
  1. LAMOTRIGINE [Suspect]
     Active Substance: LAMOTRIGINE
     Indication: Partial seizures
     Dosage: 50MG AM AND 75MG PM
     Route: 065
     Dates: start: 20220118

REACTIONS (20)
  - Multiple organ dysfunction syndrome [Fatal]
  - Brain oedema [Fatal]
  - Renal failure [Fatal]
  - Respiratory failure [Fatal]
  - Haemophagocytic lymphohistiocytosis [Fatal]
  - Rash erythematous [Fatal]
  - Tachycardia [Fatal]
  - Pyrexia [Fatal]
  - Oropharyngeal pain [Fatal]
  - Decreased appetite [Fatal]
  - Fluid intake reduced [Fatal]
  - Rash [Fatal]
  - Headache [Fatal]
  - Dizziness [Fatal]
  - Arthralgia [Fatal]
  - Photophobia [Fatal]
  - Cough [Fatal]
  - Lethargy [Fatal]
  - Ear pain [Fatal]
  - Swelling face [Fatal]

NARRATIVE: CASE EVENT DATE: 20220306
